FAERS Safety Report 6502037-5 (Version None)
Quarter: 2009Q4

REPORT INFORMATION
  Report Type: 
  Country: None (occurrence: None)
  Receive Date: 20091216
  Receipt Date: 20091203
  Transmission Date: 20100525
  Serious: Yes (Hospitalization)
  Sender: FDA-Public Use
  Company Number: BR-GENENTECH-295652

PATIENT
  Age: 20 Year
  Sex: Female
  Weight: 53 kg

DRUGS (3)
  1. RITUXIMAB [Suspect]
     Indication: RHEUMATOID ARTHRITIS
     Dosage: 1 G, UNK
     Route: 042
     Dates: start: 20090401, end: 20091112
  2. PREDNISONE [Concomitant]
     Indication: PREMEDICATION
     Dosage: UNK
  3. SULFASALAZINE [Concomitant]
     Indication: PREMEDICATION
     Dosage: UNK

REACTIONS (4)
  - HYPERSENSITIVITY [None]
  - INSOMNIA [None]
  - MYOCLONUS [None]
  - RHEUMATOID ARTHRITIS [None]
